FAERS Safety Report 7742129-6 (Version None)
Quarter: 2011Q3

REPORT INFORMATION
  Report Type: 
  Country: None (occurrence: None)
  Receive Date: 20110912
  Receipt Date: 20110831
  Transmission Date: 20111222
  Serious: Yes (Hospitalization)
  Sender: FDA-Public Use
  Company Number: US-JNJFOC-20110902421

PATIENT
  Age: 43 Year
  Sex: Female
  Weight: 67.13 kg

DRUGS (2)
  1. TYLENOL-500 [Suspect]
     Indication: HEADACHE
     Dosage: 2-3 TIMES
     Route: 048
     Dates: start: 20110301, end: 20110326
  2. TYLENOL-500 [Suspect]
     Indication: ARTHRALGIA
     Dosage: 2-3 TIMES
     Route: 048
     Dates: start: 20110301, end: 20110326

REACTIONS (7)
  - PRODUCT QUALITY ISSUE [None]
  - ABDOMINAL PAIN [None]
  - NAUSEA [None]
  - HEPATIC ENZYME INCREASED [None]
  - PAIN [None]
  - DRUG INEFFECTIVE [None]
  - ABDOMINAL DISTENSION [None]
